FAERS Safety Report 4666122-5 (Version None)
Quarter: 2005Q2

REPORT INFORMATION
  Report Type: 
  Country: None (occurrence: None)
  Receive Date: 20050519
  Receipt Date: 20050510
  Transmission Date: 20051028
  Serious: Yes (Other)
  Sender: FDA-Public Use
  Company Number: US-JNJFOC-20050503838

PATIENT
  Age: 43 Year
  Sex: Male

DRUGS (15)
  1. IBUPROFEN [Suspect]
     Indication: DRUG USE FOR UNKNOWN INDICATION
  2. VIREAD [Suspect]
     Indication: DRUG USE FOR UNKNOWN INDICATION
     Route: 049
  3. SAQUINAVIR [Concomitant]
  4. LOPINAVIR/RITONAVIR [Concomitant]
  5. ENFUVIRTIDE [Concomitant]
  6. DAPSONE [Concomitant]
  7. AZITHROMYCIN [Concomitant]
  8. FLUCONAZOLE [Concomitant]
  9. ACYCLOVIR [Concomitant]
  10. ESOMEPRAZOLE [Concomitant]
  11. DILTIAZEM [Concomitant]
  12. CHLORPHENIRAMINE/PSEUDOEPHEDRINE SR [Concomitant]
  13. CHLORPHENIRAMINE/PSEUDOEPHEDRINE SR [Concomitant]
  14. KETOCONAZOLE [Concomitant]
  15. HYDROCORTISONE CREAM [Concomitant]

REACTIONS (1)
  - RENAL IMPAIRMENT [None]
